FAERS Safety Report 4610005-3 (Version None)
Quarter: 2005Q1

REPORT INFORMATION
  Report Type: 
  Country: None (occurrence: None)
  Receive Date: 20050316
  Receipt Date: 20050303
  Transmission Date: 20050727
  Serious: Yes (Hospitalization, Other)
  Sender: FDA-Public Use
  Company Number: PHEH2005US02830

PATIENT
  Age: 57 Year
  Sex: Female
  Weight: 58 kg

DRUGS (2)
  1. LAMISIL [Suspect]
     Indication: NAIL TINEA
     Dosage: 250 MG, QD
     Route: 048
     Dates: start: 20050202, end: 20050224
  2. PREMARIN [Concomitant]
     Dosage: 0.3 MG, UNK
     Route: 048
     Dates: start: 19830101

REACTIONS (7)
  - ARTHRITIS [None]
  - BLOOD BLISTER [None]
  - EPSTEIN-BARR VIRUS INFECTION [None]
  - HYPERSENSITIVITY [None]
  - RASH [None]
  - RHEUMATOID ARTHRITIS [None]
  - URTICARIA [None]
